FAERS Safety Report 18445930 (Version 1)
Quarter: 2020Q4

REPORT INFORMATION
  Report Type: Spontaneous
  Country: US (occurrence: US)
  Receive Date: 20201029
  Receipt Date: 20201029
  Transmission Date: 20210114
  Serious: No
  Sender: FDA-Public Use
  Company Number: None

PATIENT
  Age: 53 Year
  Sex: Female
  Weight: 88 kg

DRUGS (6)
  1. VITAMIN D [Concomitant]
     Active Substance: VITAMIN D NOS
  2. ABIRATERONE. [Suspect]
     Active Substance: ABIRATERONE ACETATE
     Indication: PROSTATE CANCER
     Route: 048
     Dates: start: 20201006
  3. TAMSULOSIN [Concomitant]
     Active Substance: TAMSULOSIN
  4. BICALUTAMIDE. [Concomitant]
     Active Substance: BICALUTAMIDE
  5. PREDNISONE. [Concomitant]
     Active Substance: PREDNISONE
  6. CALCIUM CARBONATE. [Concomitant]
     Active Substance: CALCIUM CARBONATE

REACTIONS (1)
  - Somnolence [None]

NARRATIVE: CASE EVENT DATE: 20201007
